FAERS Safety Report 9608722 (Version 1)
Quarter: 2013Q4

REPORT INFORMATION
  Report Type: Spontaneous
  Country: US (occurrence: US)
  Receive Date: 20131009
  Receipt Date: 20131009
  Transmission Date: 20140711
  Serious: No
  Sender: FDA-Public Use
  Company Number: US-BAXTER-2013BAX014757

PATIENT
  Age: 37 Year
  Sex: Male

DRUGS (2)
  1. DIANEAL LOW CALCIUM [Suspect]
     Indication: PERITONEAL DIALYSIS
     Route: 033
  2. EXTRANEAL [Suspect]
     Indication: PERITONEAL DIALYSIS
     Route: 033
     Dates: start: 201303, end: 20130412

REACTIONS (5)
  - Blister [Recovering/Resolving]
  - Pain in extremity [Recovering/Resolving]
  - Dry skin [Recovering/Resolving]
  - Rash pruritic [Recovering/Resolving]
  - Skin exfoliation [Recovering/Resolving]
